FAERS Safety Report 7380729-6 (Version None)
Quarter: 2011Q1

REPORT INFORMATION
  Report Type: 
  Country: None (occurrence: None)
  Receive Date: 20110329
  Receipt Date: 20091122
  Transmission Date: 20110831
  Serious: Yes (Death, Other)
  Sender: FDA-Public Use
  Company Number: US-BAYER-200940526NA

PATIENT
  Sex: Male
  Weight: 92.063 kg

DRUGS (15)
  1. DOBUTAMINE [Concomitant]
     Dosage: UNK
     Route: 042
     Dates: start: 20011017, end: 20011029
  2. VANCOMYCIN [Concomitant]
  3. PERSANTIN [Concomitant]
     Dosage: 56 MG
     Route: 048
     Dates: start: 20010914
  4. GLUCOPHAGE [Concomitant]
     Indication: DIABETES MELLITUS
     Dosage: 500MG
     Route: 048
     Dates: start: 20010730
  5. HEPARIN SODIUM [Concomitant]
     Dosage: UNK
     Route: 042
     Dates: start: 20011017
  6. ASPIRIN [Concomitant]
     Dosage: UNK
     Route: 048
     Dates: start: 20010730
  7. METFORMIN HCL [Concomitant]
  8. RED BLOOD CELLS [Concomitant]
  9. GLYBURIDE [Concomitant]
     Dosage: 5 MG
     Route: 048
     Dates: start: 20010730
  10. PLASMA [Concomitant]
  11. AMITRIPTYLINE [Concomitant]
  12. ZESTRIL [Concomitant]
  13. TRASYLOL [Suspect]
     Indication: CORONARY ARTERY BYPASS
     Dosage: 300ML FOLLOWED BY AN INFUSION OF 25-35 ML PER HOUR
     Route: 042
     Dates: start: 20011017, end: 20011017
  14. TEMAZEPAM [Concomitant]
     Dosage: 15 MGUNK
     Route: 048
     Dates: start: 20010730
  15. LASIX [Concomitant]
     Dosage: 40 MG
     Route: 042
     Dates: start: 20011017

REACTIONS (13)
  - RENAL IMPAIRMENT [None]
  - DEATH [None]
  - STRESS [None]
  - PAIN [None]
  - ANHEDONIA [None]
  - RENAL INJURY [None]
  - ANXIETY [None]
  - MULTI-ORGAN FAILURE [None]
  - RENAL FAILURE [None]
  - UNEVALUABLE EVENT [None]
  - FEAR [None]
  - EMOTIONAL DISTRESS [None]
  - INJURY [None]
